FAERS Safety Report 4883608-9 (Version None)
Quarter: 2006Q1

REPORT INFORMATION
  Report Type: 
  Country: None (occurrence: None)
  Receive Date: 20060118
  Receipt Date: 20050418
  Transmission Date: 20060701
  Serious: Yes (Death, Life-Threatening, Hospitalization, Other)
  Sender: FDA-Public Use
  Company Number: 2005GB00750

PATIENT
  Age: 57 Year
  Sex: Female

DRUGS (1)
  1. OMEPRAZOLE [Suspect]
     Route: 048
     Dates: start: 20050404

REACTIONS (2)
  - CIRCULATORY COLLAPSE [None]
  - CONVULSION [None]
